FAERS Safety Report 4293786-0 (Version None)
Quarter: 2004Q1

REPORT INFORMATION
  Report Type: 
  Country: None (occurrence: None)
  Receive Date: 20040211
  Receipt Date: 20040126
  Transmission Date: 20041129
  Serious: Yes (Other)
  Sender: FDA-Public Use
  Company Number: USA040157590

PATIENT
  Age: 67 Year
  Sex: Female

DRUGS (9)
  1. FORTEO [Suspect]
     Indication: OSTEOPOROSIS
     Dosage: 20 UG/DAY
     Dates: start: 20030801
  2. AVAPRO [Concomitant]
  3. PLAVIX [Concomitant]
  4. PRILOSEC [Concomitant]
  5. ASPIRIN [Concomitant]
  6. BEXTRA [Concomitant]
  7. TOPROL-XL [Concomitant]
  8. ATIVAN [Concomitant]
  9. LIPITOR [Concomitant]

REACTIONS (4)
  - COLLAPSE OF LUNG [None]
  - CONDITION AGGRAVATED [None]
  - HYPERSENSITIVITY [None]
  - PULMONARY CONGESTION [None]
